FAERS Safety Report 16149415 (Version 1)
Quarter: 2019Q2

REPORT INFORMATION
  Report Type: Spontaneous
  Country: JP (occurrence: JP)
  Receive Date: 20190402
  Receipt Date: 20190402
  Transmission Date: 20190711
  Serious: No
  Sender: FDA-Public Use
  Company Number: JP-ELI_LILLY_AND_COMPANY-JP201903014004

PATIENT
  Age: 69 Year
  Sex: Male

DRUGS (3)
  1. URIEF [Concomitant]
     Active Substance: SILODOSIN
     Dosage: 8 MG, DAILY
     Route: 048
  2. AVOLVE [Concomitant]
     Active Substance: DUTASTERIDE
  3. ZALUTIA [Suspect]
     Active Substance: TADALAFIL
     Indication: BENIGN PROSTATIC HYPERPLASIA
     Dosage: UNK
     Route: 048
     Dates: start: 20180312, end: 20180618

REACTIONS (1)
  - Vitreous floaters [Recovered/Resolved]
